FAERS Safety Report 5903309-5 (Version None)
Quarter: 2008Q3

REPORT INFORMATION
  Report Type: 
  Country: None (occurrence: None)
  Receive Date: 20080930
  Receipt Date: 20080919
  Transmission Date: 20090109
  Serious: Yes (Other)
  Sender: FDA-Public Use
  Company Number: B0538713A

PATIENT
  Age: 79 Year
  Sex: Male

DRUGS (7)
  1. FLUTICASONE PROPIONATE [Suspect]
     Indication: CHRONIC OBSTRUCTIVE PULMONARY DISEASE
     Route: 065
  2. PREDNISONE [Suspect]
     Dosage: 30MG PER DAY
     Route: 065
  3. DIGOXIN [Concomitant]
     Route: 065
  4. FUROSEMIDE [Concomitant]
     Route: 065
  5. OMEPRAZOLE [Concomitant]
     Route: 065
  6. IPRATROPIUM BROMIDE [Concomitant]
     Route: 065
  7. OXYGEN [Concomitant]
     Route: 065

REACTIONS (6)
  - CORNEAL CYST [None]
  - FUNGAL INFECTION [None]
  - PHAEHYPHOMYCOSIS [None]
  - RASH PUSTULAR [None]
  - SKIN LESION [None]
  - SUBCUTANEOUS ABSCESS [None]
